FAERS Safety Report 13291447 (Version 1)
Quarter: 2017Q1

REPORT INFORMATION
  Report Type: Spontaneous
  Country: US (occurrence: US)
  Receive Date: 20170302
  Receipt Date: 20170302
  Transmission Date: 20170428
  Serious: Yes (Other)
  Sender: FDA-Public Use
  Company Number: US-TEVA-743445USA

PATIENT
  Sex: Female

DRUGS (9)
  1. LIDOCAINE. [Concomitant]
     Active Substance: LIDOCAINE
  2. CYANOCOBALAMIN. [Concomitant]
     Active Substance: CYANOCOBALAMIN
  3. NYSTATIN. [Concomitant]
     Active Substance: NYSTATIN
  4. COPAXONE [Suspect]
     Active Substance: GLATIRAMER ACETATE
     Indication: MULTIPLE SCLEROSIS
     Route: 058
  5. AMPHETAMINE/DEXTROAMPHETAMINE [Concomitant]
     Active Substance: AMPHETAMINE\DEXTROAMPHETAMINE
  6. CIPROFLOXACIN. [Concomitant]
     Active Substance: CIPROFLOXACIN
  7. BACLOFEN. [Concomitant]
     Active Substance: BACLOFEN
  8. CEPHALEXIN. [Concomitant]
     Active Substance: CEPHALEXIN
  9. TROSPIUM [Concomitant]
     Active Substance: TROSPIUM

REACTIONS (1)
  - Multiple sclerosis [Unknown]
